FAERS Safety Report 4818657-X (Version None)
Quarter: 2005Q4

REPORT INFORMATION
  Report Type: 
  Country: None (occurrence: None)
  Receive Date: 20051101
  Receipt Date: 20051018
  Transmission Date: 20060501
  Serious: Yes (Hospitalization, Other)
  Sender: FDA-Public Use
  Company Number: 2005-02136

PATIENT
  Age: 62 Year
  Sex: Male
  Weight: 122.4 kg

DRUGS (4)
  1. VELCADE [Suspect]
     Indication: NON-HODGKIN'S LYMPHOMA
     Dosage: IV BOLUS
     Route: 040
     Dates: start: 20050927
  2. METRONIDAZOLE [Concomitant]
  3. LORAZEPAM [Concomitant]
  4. SYNTHROID [Concomitant]

REACTIONS (2)
  - CLOSTRIDIAL INFECTION [None]
  - DIARRHOEA [None]
